FAERS Safety Report 6071147-1 (Version None)
Quarter: 2009Q1

REPORT INFORMATION
  Report Type: 
  Country: None (occurrence: None)
  Receive Date: 20090209
  Receipt Date: 20090129
  Transmission Date: 20090719
  Serious: Yes (Hospitalization, Other)
  Sender: FDA-Public Use
  Company Number: US-ELI_LILLY_AND_COMPANY-US200809000464

PATIENT
  Age: 57 Year
  Sex: Female

DRUGS (5)
  1. EVISTA [Suspect]
     Indication: OSTEOPENIA
     Dosage: 60 MG, DAILY (1/D)
     Route: 065
     Dates: start: 20000101
  2. TENORMIN [Concomitant]
     Indication: ARRHYTHMIA
     Dosage: 25 MG, DAILY (1/D)
     Route: 065
  3. PEPCID [Concomitant]
     Indication: REFLUX OESOPHAGITIS
     Dosage: UNK, AS NEEDED
     Route: 065
  4. ZOLOFT [Concomitant]
     Indication: DEPRESSION
     Dosage: UNK, UNKNOWN
     Route: 065
  5. ZOLOFT [Concomitant]
     Dosage: 25 MG, DAILY (1/D)
     Route: 065

REACTIONS (1)
  - COLITIS ISCHAEMIC [None]
